FAERS Safety Report 13301216 (Version 1)
Quarter: 2017Q1

REPORT INFORMATION
  Report Type: Spontaneous
  Country: US (occurrence: US)
  Receive Date: 20170306
  Receipt Date: 20170306
  Transmission Date: 20170428
  Serious: Yes (Other)
  Sender: FDA-Public Use
  Company Number: None

PATIENT
  Age: 57 Year
  Sex: Female
  Weight: 51.75 kg

DRUGS (19)
  1. AYE SALINE NASAL GEL [Concomitant]
  2. NIGHTTIME GEL FOR EYES [Concomitant]
  3. LIVALO [Concomitant]
     Active Substance: PITAVASTATIN CALCIUM
  4. LUPUS MEDS [Concomitant]
  5. Q210 [Concomitant]
  6. LIDOCAINE GEL [Concomitant]
  7. D [Concomitant]
  8. SYSTANE (HYPROMELLOSE 2910 (4000 MPA.S)) [Concomitant]
     Active Substance: HYPROMELLOSE 2910 (4000 MPA.S)
  9. BIOTENE GEL [Concomitant]
  10. XIIDRA [Suspect]
     Active Substance: LIFITEGRAST
     Indication: DRY EYE
     Route: 047
  11. BABY ASPIRIN [Concomitant]
     Active Substance: ASPIRIN
  12. FISH OIL [Concomitant]
     Active Substance: FISH OIL
  13. MAGNESIUM [Concomitant]
     Active Substance: MAGNESIUM
  14. AQUAPHOR LIPS + SKIN [Concomitant]
  15. BIOTENE DRY MOUTH TOOTHPASTE [Concomitant]
  16. LIDOCAINE PATCHES [Concomitant]
  17. XIIDRA [Suspect]
     Active Substance: LIFITEGRAST
     Indication: SJOGREN^S SYNDROME
     Route: 047
  18. TOPERAL [Concomitant]
  19. VITAMIN E [Concomitant]
     Active Substance: .ALPHA.-TOCOPHEROL

REACTIONS (13)
  - Ear pain [None]
  - Sjogren^s syndrome [None]
  - Instillation site pain [None]
  - Condition aggravated [None]
  - Sinus disorder [None]
  - Instillation site swelling [None]
  - Bladder pain [None]
  - Dyspnoea [None]
  - Sinus pain [None]
  - Dysuria [None]
  - Headache [None]
  - Asthma [None]
  - Epistaxis [None]

NARRATIVE: CASE EVENT DATE: 20170303
